FAERS Safety Report 15275805 (Version 1)
Quarter: 2018Q3

REPORT INFORMATION
  Report Type: Spontaneous
  Country: US (occurrence: US)
  Receive Date: 20180814
  Receipt Date: 20180814
  Transmission Date: 20181010
  Serious: No
  Sender: FDA-Public Use
  Company Number: US-GLENMARK PHARMACEUTICALS-2018GMK036194

PATIENT

DRUGS (1)
  1. HEATHER [Suspect]
     Active Substance: NORETHINDRONE
     Indication: CONTRACEPTION
     Dosage: UNK
     Route: 065

REACTIONS (4)
  - Drug dose omission [Unknown]
  - Treatment noncompliance [Unknown]
  - Diarrhoea [Unknown]
  - Malaise [Unknown]
